FAERS Safety Report 9749034 (Version 1)
Quarter: 2013Q4

REPORT INFORMATION
  Report Type: Spontaneous
  Country: US (occurrence: US)
  Receive Date: 20131212
  Receipt Date: 20131212
  Transmission Date: 20140711
  Serious: No
  Sender: FDA-Public Use
  Company Number: US-INCYTE CORPORATION-2013IN002266

PATIENT
  Age: 84 Year
  Sex: Female

DRUGS (4)
  1. JAKAFI [Suspect]
     Indication: MYELOFIBROSIS
     Dosage: 10 MG, BID
     Route: 048
     Dates: start: 201301
  2. LEXAPRO [Concomitant]
  3. LOMOTIL [Concomitant]
  4. MULTIVITAMIN [Concomitant]

REACTIONS (1)
  - Haematochezia [Recovering/Resolving]
